FAERS Safety Report 5359293-9 (Version None)
Quarter: 2007Q2

REPORT INFORMATION
  Report Type: 
  Country: None (occurrence: None)
  Receive Date: 20070615
  Receipt Date: 20070607
  Transmission Date: 20071010
  Serious: Yes (Other)
  Sender: FDA-Public Use
  Company Number: US-GILEAD-2006-0009269

PATIENT
  Sex: Female
  Weight: 52.664 kg

DRUGS (5)
  1. TENOFOVIR DISOPROXIL FUMARATE [Suspect]
     Indication: HEPATITIS B
     Route: 048
     Dates: start: 20060127, end: 20070105
  2. LIPITOR [Concomitant]
     Indication: BLOOD CHOLESTEROL INCREASED
     Dates: start: 20050701, end: 20060311
  3. VITAMIN CAP [Concomitant]
     Indication: VITAMIN SUPPLEMENTATION
     Dates: start: 20030518
  4. CALCIUM CHLORIDE [Concomitant]
     Indication: MINERAL SUPPLEMENTATION
     Dates: start: 20030518
  5. FOSAMAX [Concomitant]
     Indication: ARTHRITIS
     Dates: start: 20030518

REACTIONS (1)
  - ALANINE AMINOTRANSFERASE INCREASED [None]
